FAERS Safety Report 14656082 (Version 3)
Quarter: 2018Q2

REPORT INFORMATION
  Report Type: Report from Study
  Country: MX (occurrence: MX)
  Receive Date: 20180319
  Receipt Date: 20180416
  Transmission Date: 20180711
  Serious: Yes (Other)
  Sender: FDA-Public Use
  Company Number: PHHY2018MX040680

PATIENT
  Sex: Male

DRUGS (4)
  1. OMEPRAZOLE. [Suspect]
     Active Substance: OMEPRAZOLE
     Indication: PRODUCT USED FOR UNKNOWN INDICATION
     Dosage: 1 DF, QD 1 MONTH AGO STOPPED
     Route: 048
  2. DIOVAN [Suspect]
     Active Substance: VALSARTAN
     Indication: HYPERTENSION
     Dosage: 160 MG, QD
     Route: 048
     Dates: start: 2000
  3. BREWER^S YEAST [Concomitant]
     Indication: PRODUCT USED FOR UNKNOWN INDICATION
     Route: 065
  4. ASPIRIN. [Suspect]
     Active Substance: ASPIRIN
     Indication: PRODUCT USED FOR UNKNOWN INDICATION
     Dosage: 1 DF, QD STARTED 2 YEARS AGO STOPPED 2 MONTHS AGO
     Route: 048

REACTIONS (6)
  - Bladder disorder [Unknown]
  - Deafness [Not Recovered/Not Resolved]
  - Colitis [Not Recovered/Not Resolved]
  - Contusion [Recovered/Resolved]
  - Bladder cancer [Unknown]
  - Drug intolerance [Unknown]

NARRATIVE: CASE EVENT DATE: 2000
